FAERS Safety Report 11072321 (Version 1)
Quarter: 2015Q2

REPORT INFORMATION
  Report Type: Spontaneous
  Country: US (occurrence: None)
  Receive Date: 20150427
  Receipt Date: 20150427
  Transmission Date: 20150821
  Serious: Yes (Disabling)
  Sender: FDA-Public Use
  Company Number: None

PATIENT
  Age: 68 Year
  Sex: Female
  Weight: 61.69 kg

DRUGS (2)
  1. THYROID SYNTHROID [Concomitant]
  2. LEVAQUIN [Suspect]
     Active Substance: LEVOFLOXACIN
     Indication: URINARY TRACT INFECTION
     Dosage: 500 MG ONCE DAILY  TAKEN BY MOUTH
     Route: 048

REACTIONS (4)
  - Bursitis [None]
  - Tendon rupture [None]
  - Tendon disorder [None]
  - Tendonitis [None]

NARRATIVE: CASE EVENT DATE: 20150421
